FAERS Safety Report 17912152 (Version 1)
Quarter: 2020Q2

REPORT INFORMATION
  Report Type: Spontaneous
  Country: US (occurrence: US)
  Receive Date: 20200618
  Receipt Date: 20200618
  Transmission Date: 20200714
  Serious: Yes (Disabling, Other)
  Sender: FDA-Public Use
  Company Number: None

PATIENT
  Age: 45 Year
  Sex: Female
  Weight: 45.9 kg

DRUGS (3)
  1. NP THYROID [Suspect]
     Active Substance: LEVOTHYROXINE\LIOTHYRONINE
     Indication: HYPOTHYROIDISM
     Dosage: ?          QUANTITY:90 TABLET(S);?
     Route: 048
  2. LISINOPRIL. [Concomitant]
     Active Substance: LISINOPRIL
  3. LEVOTHYROXINE. [Concomitant]
     Active Substance: LEVOTHYROXINE

REACTIONS (11)
  - Blood pressure inadequately controlled [None]
  - Headache [None]
  - Hypertension [None]
  - Fatigue [None]
  - Chest discomfort [None]
  - Heart rate increased [None]
  - Asthenia [None]
  - Dizziness [None]
  - Hyperthyroidism [None]
  - Myalgia [None]
  - Palpitations [None]

NARRATIVE: CASE EVENT DATE: 20200518
